FAERS Safety Report 6445498-2 (Version None)
Quarter: 2009Q4

REPORT INFORMATION
  Report Type: 
  Country: None (occurrence: None)
  Receive Date: 20091118
  Receipt Date: 20090915
  Transmission Date: 20100525
  Serious: Yes (Hospitalization, Other)
  Sender: FDA-Public Use
  Company Number: TR-PFIZER INC-2009264347

PATIENT
  Age: 16 Year
  Sex: Male

DRUGS (5)
  1. SERTRALINE HCL [Suspect]
     Indication: OBSESSIVE THOUGHTS
     Dosage: UNK
  2. SERTRALINE HCL [Suspect]
     Indication: SEDATION
  3. CLOZAPINE [Suspect]
     Indication: SCHIZOPHRENIA
     Dosage: UNK
  4. RISPERIDONE [Suspect]
     Dosage: UNK
  5. OLANZAPINE [Suspect]
     Indication: SCHIZOPHRENIA

REACTIONS (4)
  - DRUG INEFFECTIVE [None]
  - OBSESSIVE THOUGHTS [None]
  - SOMNOLENCE [None]
  - WEIGHT INCREASED [None]
